FAERS Safety Report 9216137 (Version 1)
Quarter: 2013Q2

REPORT INFORMATION
  Report Type: Spontaneous
  Country: ES (occurrence: None)
  Receive Date: 20130402
  Receipt Date: 20130402
  Transmission Date: 20140414
  Serious: Yes (Hospitalization, Other)
  Sender: FDA-Public Use
  Company Number: 2013P1003676

PATIENT
  Age: 74 Year
  Sex: Male

DRUGS (4)
  1. AMIODARONE [Suspect]
     Indication: ATRIAL FIBRILLATION
  2. ACENOCOUMAROL [Concomitant]
  3. BISOPROLOL [Concomitant]
  4. ASPIRIN [Suspect]

REACTIONS (12)
  - Haemoptysis [None]
  - Dyspnoea [None]
  - Orthopnoea [None]
  - Pulmonary oedema [None]
  - Malaise [None]
  - Pallor [None]
  - Dehydration [None]
  - Cachexia [None]
  - Oxygen saturation decreased [None]
  - Anaemia [None]
  - Hypocoagulable state [None]
  - Pulmonary alveolar haemorrhage [None]
